FAERS Safety Report 14982691 (Version 1)
Quarter: 2018Q2

REPORT INFORMATION
  Report Type: Spontaneous
  Country: BR (occurrence: BR)
  Receive Date: 20180607
  Receipt Date: 20180607
  Transmission Date: 20180711
  Serious: Yes (Other)
  Sender: FDA-Public Use
  Company Number: BR-BRISTOL-MYERS SQUIBB COMPANY-BMS-2018-050995

PATIENT
  Sex: Male
  Weight: 110 kg

DRUGS (1)
  1. METFORMIN HYDROCHLORIDE. [Suspect]
     Active Substance: METFORMIN HYDROCHLORIDE
     Indication: GLUCOSE TOLERANCE IMPAIRED
     Dosage: 500 MG, UNK
     Route: 065
     Dates: start: 2013

REACTIONS (4)
  - Diverticulitis [Unknown]
  - Hyperhidrosis [Unknown]
  - Obesity [Unknown]
  - Hepatic steatosis [Unknown]
